FAERS Safety Report 7307827-7 (Version None)
Quarter: 2011Q1

REPORT INFORMATION
  Report Type: 
  Country: None (occurrence: None)
  Receive Date: 20110209
  Receipt Date: 20110124
  Transmission Date: 20110831
  Serious: Yes (Death)
  Sender: FDA-Public Use
  Company Number: 2011S1000049

PATIENT
  Age: 37 Year
  Sex: Female

DRUGS (11)
  1. CYCLINIC ANTIDEPRESSANT, UNKNOWN [Suspect]
     Dosage: PO
     Route: 048
     Dates: end: 20090101
  2. NAPROXEN [Suspect]
     Dosage: PO
     Route: 048
     Dates: end: 20090101
  3. GABAPENTIN [Suspect]
     Dosage: PO
     Route: 048
     Dates: end: 20090101
  4. ACETAMINOPHEN [Suspect]
     Dosage: PO
     Route: 048
     Dates: end: 20090101
  5. DIPHENHYDRAMINE [Suspect]
     Dosage: PO
     Route: 048
     Dates: end: 20090101
  6. AMLODIPINE [Suspect]
     Dosage: PO
     Route: 048
     Dates: end: 20090101
  7. ETHANOL [Suspect]
     Dosage: PO
     Route: 048
     Dates: end: 20090101
  8. ZIPRASIDONE [Suspect]
     Dosage: PO
     Route: 048
     Dates: end: 20090101
  9. ROXICODONE [Suspect]
     Dosage: PO
     Route: 048
     Dates: end: 20090101
  10. ZOLPIDEM [Suspect]
     Dosage: PO
     Route: 048
     Dates: end: 20090101
  11. ALPRAZOLAM [Suspect]
     Dosage: PO
     Route: 048
     Dates: end: 20090101

REACTIONS (1)
  - COMPLETED SUICIDE [None]
